FAERS Safety Report 10533601 (Version 2)
Quarter: 2014Q4

REPORT INFORMATION
  Report Type: Spontaneous
  Country: US (occurrence: US)
  Receive Date: 20141022
  Receipt Date: 20141027
  Transmission Date: 20150529
  Serious: Yes (Death)
  Sender: FDA-Public Use
  Company Number: US-ROCHE-1477256

PATIENT
  Age: 61 Year
  Sex: Male

DRUGS (3)
  1. AVASTIN [Suspect]
     Active Substance: BEVACIZUMAB
     Indication: RECTAL CANCER
     Route: 042
     Dates: start: 20140812, end: 20141007
  2. CAPECITABINE. [Concomitant]
     Active Substance: CAPECITABINE
  3. AVASTIN [Suspect]
     Active Substance: BEVACIZUMAB
     Route: 042
     Dates: start: 20140812, end: 20141007

REACTIONS (3)
  - Malignant neoplasm progression [Fatal]
  - Cardio-respiratory arrest [Fatal]
  - Intestinal obstruction [Fatal]

NARRATIVE: CASE EVENT DATE: 20141003
